FAERS Safety Report 21090648 (Version 1)
Quarter: 2022Q3

REPORT INFORMATION
  Report Type: Spontaneous
  Country: US (occurrence: US)
  Receive Date: 20220716
  Receipt Date: 20220716
  Transmission Date: 20221026
  Serious: No
  Sender: FDA-Public Use
  Company Number: US-SA-SAC20220711000468

PATIENT
  Sex: Male

DRUGS (4)
  1. DUPIXENT [Suspect]
     Active Substance: DUPILUMAB
     Indication: Psoriasis
     Dosage: 300MG, QOW
     Route: 058
     Dates: start: 2018
  2. DOXEPIN [Concomitant]
     Active Substance: DOXEPIN
  3. OMEPRAZOLE AND SODIUM BICARBONATE [Concomitant]
     Active Substance: OMEPRAZOLE\SODIUM BICARBONATE
  4. ACRIVASTINE [Concomitant]
     Active Substance: ACRIVASTINE

REACTIONS (2)
  - Pruritus [Unknown]
  - Drug effective for unapproved indication [Unknown]
